FAERS Safety Report 14085300 (Version 2)
Quarter: 2020Q1

REPORT INFORMATION
  Report Type: Spontaneous
  Country: US (occurrence: US)
  Receive Date: 20171013
  Receipt Date: 20200218
  Transmission Date: 20200409
  Serious: No
  Sender: FDA-Public Use
  Company Number: US-PFIZER INC-2017436379

PATIENT
  Sex: Female

DRUGS (2)
  1. LYRICA [Suspect]
     Active Substance: PREGABALIN
     Indication: NEURALGIA
     Dosage: 600 MG, DAILY
  2. LYRICA [Suspect]
     Active Substance: PREGABALIN
     Indication: DYSTONIA
     Dosage: 1000 MG, DAILY

REACTIONS (14)
  - Product dose omission [Unknown]
  - Back disorder [Unknown]
  - Hyperaesthesia [Unknown]
  - Urticaria [Unknown]
  - Muscle tightness [Unknown]
  - Influenza like illness [Unknown]
  - Withdrawal syndrome [Unknown]
  - Asthenia [Unknown]
  - Myalgia [Unknown]
  - Depressed mood [Unknown]
  - Arthralgia [Unknown]
  - Overdose [Unknown]
  - Chills [Unknown]
  - Sunburn [Unknown]
